FAERS Safety Report 4539715-3 (Version None)
Quarter: 2004Q4

REPORT INFORMATION
  Report Type: 
  Country: None (occurrence: None)
  Receive Date: 20041228
  Receipt Date: 20041217
  Transmission Date: 20050328
  Serious: Yes (Hospitalization)
  Sender: FDA-Public Use
  Company Number: JP-JNJFOC-20041101656

PATIENT
  Age: 71 Year
  Sex: Female

DRUGS (2)
  1. ITRIZOLE [Suspect]
     Indication: ONYCHOMYCOSIS
     Route: 049
  2. AMLODIPINE [Suspect]
     Indication: HYPERTENSION
     Route: 049

REACTIONS (2)
  - CELLULITIS [None]
  - OEDEMA PERIPHERAL [None]
